FAERS Safety Report 9712501 (Version 1)
Quarter: 2013Q4

REPORT INFORMATION
  Report Type: Spontaneous
  Country: US (occurrence: US)
  Receive Date: 20131126
  Receipt Date: 20131126
  Transmission Date: 20140711
  Serious: No
  Sender: FDA-Public Use
  Company Number: US-BRISTOL-MYERS SQUIBB COMPANY-19191352

PATIENT
  Age: 87 Year
  Sex: Male
  Weight: 104.31 kg

DRUGS (16)
  1. BYDUREON [Suspect]
     Dosage: 2ND AND 3RD KITS:73044 EXP DATE:SEP13
  2. PRILOSEC [Concomitant]
  3. GLIPIZIDE [Concomitant]
  4. MULTIVITAMIN [Concomitant]
  5. NORVASC [Concomitant]
  6. TOPROL [Concomitant]
  7. PLAVIX [Concomitant]
  8. VITAMIN C [Concomitant]
  9. SODIUM [Concomitant]
  10. CALCIUM [Concomitant]
  11. TOPROL [Concomitant]
  12. NAMENDA [Concomitant]
  13. TEKTURNA [Concomitant]
  14. VITAMIN B12 [Concomitant]
  15. WELCHOL [Concomitant]
  16. CALCITRIOL [Concomitant]

REACTIONS (1)
  - Injection site pain [Unknown]
